FAERS Safety Report 4395418-X (Version None)
Quarter: 2004Q3

REPORT INFORMATION
  Report Type: 
  Country: None (occurrence: None)
  Receive Date: 20040712
  Receipt Date: 20040712
  Transmission Date: 20050211
  Serious: Yes (Life-Threatening, Hospitalization)
  Sender: FDA-Public Use
  Company Number: None

PATIENT
  Age: 42 Year
  Sex: Male
  Weight: 107 kg

DRUGS (11)
  1. REYATAZ [Suspect]
     Indication: HIV INFECTION
     Dosage: 300 MG QD ORAL
     Route: 048
     Dates: start: 20040702, end: 20040703
  2. NORVIR [Concomitant]
  3. VIREAD [Concomitant]
  4. CLARINEX [Concomitant]
  5. SUDAFED S.A. [Concomitant]
  6. ROBITUSSIN [Concomitant]
  7. VANCOMYCIN [Concomitant]
  8. LEVAQUIN [Concomitant]
  9. LEVOTHYROXINE SODIUM [Concomitant]
  10. TYLENOL [Concomitant]
  11. OXYCODONE HCL [Concomitant]

REACTIONS (3)
  - ATRIOVENTRICULAR BLOCK COMPLETE [None]
  - SINUS ARREST [None]
  - SYNCOPE [None]
